FAERS Safety Report 8208362-4 (Version None)
Quarter: 2012Q1

REPORT INFORMATION
  Report Type: 
  Country: None (occurrence: None)
  Receive Date: 20120314
  Receipt Date: 20120307
  Transmission Date: 20120608
  Serious: Yes (Other)
  Sender: FDA-Public Use
  Company Number: US-AMGEN-USASP2011033177

PATIENT
  Age: 88 Year
  Sex: Female

DRUGS (14)
  1. PROLIA [Suspect]
     Indication: OSTEOPOROSIS POSTMENOPAUSAL
     Dosage: 60 MG, Q6MO
     Dates: start: 20110126
  2. GLIPIZIDE [Concomitant]
     Dosage: 2 MG, QD
  3. CALCIUM WITH VITAMIN D             /00944201/ [Concomitant]
     Dosage: 2 MG, QD
  4. GLIMEPIRIDE [Concomitant]
     Dosage: 2 UNK, BID
     Dates: end: 20110101
  5. SIMVASTATIN [Concomitant]
     Dosage: 20 MG, UNK
  6. SIMVASTATIN [Concomitant]
     Dosage: 40 MG, QD
     Dates: start: 20110620
  7. OMEGA 3                            /00931501/ [Concomitant]
     Dosage: 1 UNK, QD
  8. AYR                                /00083601/ [Concomitant]
  9. PATADAY [Concomitant]
     Route: 047
  10. ASPIRIN [Concomitant]
     Dosage: 1 MG, QD
  11. METFORMIN [Concomitant]
     Dosage: 1 UNK, QD
  12. OMEPRAZOLE [Concomitant]
  13. VITAMIN D [Concomitant]
     Dosage: 1 IU, QD
  14. GLIPIZIDE [Concomitant]
     Dosage: 5 MG, BID

REACTIONS (18)
  - BLOOD CHOLESTEROL DECREASED [None]
  - INFECTION [None]
  - PAIN [None]
  - INFECTION SUSCEPTIBILITY INCREASED [None]
  - HYPOTHYROIDISM [None]
  - MALAISE [None]
  - ASTHENIA [None]
  - PRURITUS [None]
  - HYPOAESTHESIA [None]
  - HEADACHE [None]
  - HYPERSOMNIA [None]
  - MYALGIA [None]
  - SINUSITIS [None]
  - BLOOD GLUCOSE DECREASED [None]
  - FATIGUE [None]
  - PARAESTHESIA [None]
  - WEIGHT DECREASED [None]
  - GASTROENTERITIS VIRAL [None]
